FAERS Safety Report 6905299-5 (Version None)
Quarter: 2010Q3

REPORT INFORMATION
  Report Type: 
  Country: None (occurrence: None)
  Receive Date: 20100802
  Receipt Date: 20100720
  Transmission Date: 20110219
  Serious: Yes (Hospitalization)
  Sender: FDA-Public Use
  Company Number: UTC-001266

PATIENT
  Age: 51 Year
  Sex: Male
  Weight: 120 kg

DRUGS (10)
  1. REMODULIN [Suspect]
     Dosage: 106.56 UG/KG (0.074 UG/KG, 1 IN 1 MIN), SUBCUTANEOUS
     Route: 058
  2. LASIX [Concomitant]
  3. METOLAZONE [Concomitant]
  4. COUMADIN [Concomitant]
  5. INSPRA [Concomitant]
  6. LANOXIN [Concomitant]
  7. POTASSIUM CHLORIDE [Concomitant]
  8. MAG OXIDE (MAGNESIUM OXIDE) [Concomitant]
  9. ZOLOFT [Concomitant]
  10. XANAX [Concomitant]

REACTIONS (1)
  - FLUID RETENTION [None]
